FAERS Safety Report 5854699-3 (Version None)
Quarter: 2008Q3

REPORT INFORMATION
  Report Type: 
  Country: None (occurrence: None)
  Receive Date: 20080822
  Receipt Date: 20071211
  Transmission Date: 20090109
  Serious: No
  Sender: FDA-Public Use
  Company Number: US-ABBOTT-07P-163-0430162-00

PATIENT
  Sex: Female

DRUGS (6)
  1. SYNTHROID [Suspect]
     Indication: DRUG USE FOR UNKNOWN INDICATION
  2. LEXAPRO [Interacting]
     Indication: DRUG USE FOR UNKNOWN INDICATION
  3. LAMOTRIGINE [Interacting]
     Indication: DRUG USE FOR UNKNOWN INDICATION
  4. MODAFINIL [Interacting]
     Indication: DRUG USE FOR UNKNOWN INDICATION
  5. LEVETIRACETAM [Interacting]
     Indication: DRUG USE FOR UNKNOWN INDICATION
  6. ARIPIPRAZOLE [Interacting]
     Indication: DRUG USE FOR UNKNOWN INDICATION

REACTIONS (3)
  - DRUG INTERACTION [None]
  - DRUG SCREEN POSITIVE [None]
  - URINE ODOUR ABNORMAL [None]
